FAERS Safety Report 8207700-6 (Version None)
Quarter: 2012Q1

REPORT INFORMATION
  Report Type: 
  Country: None (occurrence: None)
  Receive Date: 20120314
  Receipt Date: 20120312
  Transmission Date: 20120608
  Serious: Yes (Other)
  Sender: FDA-Public Use
  Company Number: US-BAYER-2012-024259

PATIENT
  Age: 57 Year
  Sex: Female

DRUGS (5)
  1. ACETAMINOPHEN [Concomitant]
     Indication: PREMEDICATION
  2. CYMBALTA [Concomitant]
  3. INTERFERON BETA-1B [Suspect]
     Indication: RELAPSING-REMITTING MULTIPLE SCLEROSIS
     Dosage: 6 MIU, QOD
     Route: 058
     Dates: start: 20120209
  4. LYRICA [Concomitant]
  5. ATIVAN [Concomitant]

REACTIONS (8)
  - IRRITABILITY [None]
  - TREMOR [None]
  - DEPRESSION [None]
  - ANXIETY [None]
  - TACHYPHRENIA [None]
  - INSOMNIA [None]
  - BLOOD POTASSIUM DECREASED [None]
  - URINE ANALYSIS ABNORMAL [None]
